FAERS Safety Report 12699505 (Version 1)
Quarter: 2016Q3

REPORT INFORMATION
  Report Type: Spontaneous
  Country: US (occurrence: US)
  Receive Date: 20160830
  Receipt Date: 20160830
  Transmission Date: 20161109
  Serious: No
  Sender: FDA-Public Use
  Company Number: US-SUPERNUS PHARMACEUTICALS, INC.-2016SUP00134

PATIENT
  Sex: Female

DRUGS (1)
  1. TROKENDI XR [Suspect]
     Active Substance: TOPIRAMATE
     Dosage: UNK

REACTIONS (6)
  - Dysgeusia [Unknown]
  - Abdominal pain upper [Unknown]
  - Back pain [Unknown]
  - Hypoaesthesia [Unknown]
  - Neck pain [Unknown]
  - Paraesthesia [Unknown]
